FAERS Safety Report 5963049-3 (Version None)
Quarter: 2008Q4

REPORT INFORMATION
  Report Type: 
  Country: None (occurrence: None)
  Receive Date: 20081120
  Receipt Date: 20081110
  Transmission Date: 20090506
  Serious: Yes (Other)
  Sender: FDA-Public Use
  Company Number: 2008AP003041

PATIENT
  Age: 48 Year
  Sex: Male

DRUGS (5)
  1. ZOLPIDEM TARTRATE [Suspect]
     Indication: INSOMNIA
     Dosage: 30 MG; 10 MG; HS
  2. HYDROCODONE BITARTRATE [Concomitant]
  3. PARACETAMOL [Concomitant]
  4. FENTANYL [Concomitant]
  5. ESOMEPRAZOLE MAGNESIUM [Concomitant]

REACTIONS (6)
  - ABNORMAL BEHAVIOUR [None]
  - AMNESIA [None]
  - CONFUSIONAL STATE [None]
  - DISORIENTATION [None]
  - ROAD TRAFFIC ACCIDENT [None]
  - SOMNAMBULISM [None]
